FAERS Safety Report 7366702-2 (Version None)
Quarter: 2011Q1

REPORT INFORMATION
  Report Type: 
  Country: None (occurrence: None)
  Receive Date: 20110225
  Receipt Date: 20101116
  Transmission Date: 20110831
  Serious: No
  Sender: FDA-Public Use
  Company Number: 318482

PATIENT
  Age: 64 Year
  Sex: Male

DRUGS (4)
  1. METFORMIN HCL [Concomitant]
  2. LANTUS [Concomitant]
  3. VICTOZA [Suspect]
     Indication: TYPE 2 DIABETES MELLITUS
     Dosage: 1.8 MG, QD, SUBCUTANEOUS
     Route: 058
     Dates: start: 20101001, end: 20101101
  4. NOVOLOG [Concomitant]

REACTIONS (3)
  - DIZZINESS [None]
  - DYSPHAGIA [None]
  - DYSPHONIA [None]
